FAERS Safety Report 25927177 (Version 1)
Quarter: 2025Q4

REPORT INFORMATION
  Report Type: Spontaneous
  Country: US (occurrence: US)
  Receive Date: 20251015
  Receipt Date: 20251015
  Transmission Date: 20260118
  Serious: No
  Sender: SHIELD THERAPEUTICS
  Company Number: US-SHIELD THERAPEUTICS-US-STX-25-00248

PATIENT

DRUGS (2)
  1. ACCRUFER [Suspect]
     Active Substance: FERRIC MALTOL
     Indication: Product used for unknown indication
     Dosage: UNK UNKNOWN, BID
     Route: 065
  2. ACCRUFER [Suspect]
     Active Substance: FERRIC MALTOL
     Dosage: UNK UNKNOWN, QOD
     Route: 065

REACTIONS (3)
  - Rheumatoid arthritis [Unknown]
  - Abdominal discomfort [Unknown]
  - Inappropriate schedule of product administration [Unknown]
